FAERS Safety Report 19393810 (Version 1)
Quarter: 2021Q2

REPORT INFORMATION
  Report Type: Spontaneous
  Country: US (occurrence: US)
  Receive Date: 20210608
  Receipt Date: 20210608
  Transmission Date: 20210717
  Serious: Yes (Death)
  Sender: FDA-Public Use
  Company Number: None

PATIENT
  Age: 28 Year
  Sex: Female

DRUGS (1)
  1. TRIKAFTA [Suspect]
     Active Substance: ELEXACAFTOR\IVACAFTOR\TEZACAFTOR
     Indication: CYSTIC FIBROSIS
     Dosage: 150MG 2 TABS PO Q EVENING  W/FAT CONTAINING FOOD
     Route: 048
     Dates: start: 20200925

REACTIONS (1)
  - Death [None]

NARRATIVE: CASE EVENT DATE: 20210312
